FAERS Safety Report 14995175 (Version 1)
Quarter: 2018Q2

REPORT INFORMATION
  Report Type: Spontaneous
  Country: AU (occurrence: AU)
  Receive Date: 20180611
  Receipt Date: 20180611
  Transmission Date: 20180711
  Serious: Yes (Other)
  Sender: FDA-Public Use
  Company Number: AU-TEVA-2018-AU-905672

PATIENT
  Sex: Female

DRUGS (2)
  1. TEVARIPIPRAZOLE [Suspect]
     Active Substance: ARIPIPRAZOLE
     Route: 065
  2. CLOPINE [Suspect]
     Active Substance: CLOZAPINE
     Route: 065

REACTIONS (5)
  - Neurotoxicity [Unknown]
  - Arthropathy [Unknown]
  - Loss of consciousness [Unknown]
  - Drug level increased [Unknown]
  - Dyskinesia [Unknown]
